FAERS Safety Report 7659946-3 (Version None)
Quarter: 2011Q3

REPORT INFORMATION
  Report Type: 
  Country: None (occurrence: None)
  Receive Date: 20110805
  Receipt Date: 20110719
  Transmission Date: 20111222
  Serious: No
  Sender: FDA-Public Use
  Company Number: US-BAYER-2011-063024

PATIENT
  Age: 39 Year
  Sex: Female
  Weight: 86.168 kg

DRUGS (5)
  1. AMBIEN [Concomitant]
  2. MULTI-VITAMIN [Concomitant]
  3. MICARDIS [Concomitant]
  4. MAGNEVIST [Suspect]
     Indication: NUCLEAR MAGNETIC RESONANCE IMAGING
     Dosage: 18 ML, ONCE
     Route: 042
     Dates: start: 20110406, end: 20110406
  5. ASPIRIN [Concomitant]

REACTIONS (2)
  - PRURITUS [None]
  - URTICARIA [None]
